FAERS Safety Report 7091234-9 (Version None)
Quarter: 2010Q4

REPORT INFORMATION
  Report Type: 
  Country: None (occurrence: None)
  Receive Date: 20101101
  Receipt Date: 20101020
  Transmission Date: 20110411
  Serious: No
  Sender: FDA-Public Use
  Company Number: ACO_02894_2010

PATIENT
  Age: 53 Year
  Sex: Male
  Weight: 77.1115 kg

DRUGS (2)
  1. AMPYRA [Suspect]
     Indication: GAIT DISTURBANCE
     Dosage: (10 MG QD ORAL)
     Route: 048
     Dates: start: 20100628, end: 20100901
  2. BETASERON [Concomitant]

REACTIONS (2)
  - NEURALGIA [None]
  - PAIN IN EXTREMITY [None]
